FAERS Safety Report 19101024 (Version 1)
Quarter: 2021Q2

REPORT INFORMATION
  Report Type: Report from Study
  Country: EC (occurrence: EC)
  Receive Date: 20210407
  Receipt Date: 20210407
  Transmission Date: 20210717
  Serious: Yes (Hospitalization)
  Sender: FDA-Public Use
  Company Number: PHHY2014EC158892

PATIENT
  Age: 51 Year
  Sex: Male

DRUGS (8)
  1. TASIGNA [Suspect]
     Active Substance: NILOTINIB
     Dosage: 600 MG (400 MG IN MORNING AND 200 MG AT NIGHT)
     Route: 048
     Dates: start: 20160801, end: 20170605
  2. TASIGNA [Suspect]
     Active Substance: NILOTINIB
     Dosage: 500 MG (200 MG ONE DAY AND 300 MG THE FOLLOWING DAY)
     Route: 048
     Dates: start: 20190718, end: 20200910
  3. TASIGNA [Suspect]
     Active Substance: NILOTINIB
     Indication: CHRONIC MYELOID LEUKAEMIA
     Dosage: 800 MG, QD
     Route: 048
     Dates: start: 20140801, end: 20141103
  4. TASIGNA [Suspect]
     Active Substance: NILOTINIB
     Dosage: 600 MG, QD
     Route: 048
     Dates: start: 20141123
  5. TASIGNA [Suspect]
     Active Substance: NILOTINIB
     Dosage: 700 MG (300 MG ONE DAY AND 400 MG THE FOLLOWING DAY)
     Route: 048
     Dates: start: 20141023, end: 20160731
  6. TASIGNA [Suspect]
     Active Substance: NILOTINIB
     Dosage: 600 MG  (400 MG IN MORNING AND 200 MG AT NIGHT)
     Route: 048
     Dates: start: 20200911
  7. TASIGNA [Suspect]
     Active Substance: NILOTINIB
     Dosage: 500 MG (200 MG ONE DAY AND 300 MG THE FOLLOWING DAY)
     Route: 048
     Dates: start: 20170630, end: 20190215
  8. TASIGNA [Suspect]
     Active Substance: NILOTINIB
     Dosage: 200 MG, BID
     Route: 048
     Dates: start: 20190530, end: 20190717

REACTIONS (4)
  - Anaemia [Recovering/Resolving]
  - Product use issue [Unknown]
  - Platelet count decreased [Not Recovered/Not Resolved]
  - Ill-defined disorder [Unknown]

NARRATIVE: CASE EVENT DATE: 20141103
